FAERS Safety Report 16718452 (Version 1)
Quarter: 2019Q3

REPORT INFORMATION
  Report Type: Spontaneous
  Country: JP (occurrence: JP)
  Receive Date: 20190820
  Receipt Date: 20190820
  Transmission Date: 20191005
  Serious: Yes (Hospitalization, Other)
  Sender: FDA-Public Use
  Company Number: JP-TEVA-2019-JP-1093666

PATIENT
  Age: 59 Year
  Sex: Male
  Weight: 64 kg

DRUGS (6)
  1. SORAFENIB [Suspect]
     Active Substance: SORAFENIB
     Indication: HEPATOCELLULAR CARCINOMA
     Dosage: 800 MILLIGRAM DAILY;
     Route: 065
  2. REGORAFENIB. [Suspect]
     Active Substance: REGORAFENIB
     Indication: HEPATOCELLULAR CARCINOMA
     Dosage: 160 MILLIGRAM DAILY;
     Route: 065
  3. ENTECAVIR. [Concomitant]
     Active Substance: ENTECAVIR
     Indication: HEPATITIS B
     Route: 065
  4. LENVATINIB [Suspect]
     Active Substance: LENVATINIB
     Indication: HEPATOCELLULAR CARCINOMA
     Dosage: 12 MILLIGRAM DAILY;
     Route: 065
  5. LENVATINIB [Suspect]
     Active Substance: LENVATINIB
     Indication: HEPATIC CIRRHOSIS
  6. CISPLATIN. [Suspect]
     Active Substance: CISPLATIN
     Indication: HEPATOCELLULAR CARCINOMA
     Dosage: ROUTE: TRANSARTERIAL CHEMOEMBOLISATION AND/OR TRANSARTERIAL INFUSION; SIX TIMES IN 15 MONTHS
     Route: 050

REACTIONS (8)
  - Respiratory alkalosis [Unknown]
  - Dyspnoea exertional [Recovering/Resolving]
  - Interstitial lung disease [Recovering/Resolving]
  - Hypertension [Recovering/Resolving]
  - Palmar-plantar erythrodysaesthesia syndrome [Recovering/Resolving]
  - Therapy partial responder [Unknown]
  - Drug hypersensitivity [Unknown]
  - Hypoxia [Recovering/Resolving]
